FAERS Safety Report 9674192 (Version 3)
Quarter: 2014Q3

REPORT INFORMATION
  Report Type: Report from Study
  Country: JP (occurrence: JP)
  Receive Date: 20131106
  Receipt Date: 20140804
  Transmission Date: 20150326
  Serious: Yes (Death, Life-Threatening, Disabling)
  Sender: FDA-Public Use
  Company Number: JP-009507513-1311JPN000613

PATIENT
  Age: 66 Year
  Sex: Female
  Weight: 58 kg

DRUGS (44)
  1. DEPAKENE [Concomitant]
     Active Substance: VALPROIC ACID
     Dosage: DAILY DOSAGE UNKNOWN, POR
     Route: 048
  2. PREDNISOLONE. [Concomitant]
     Active Substance: PREDNISOLONE
     Dosage: DAILY DOSAGE UNKNOWN, POR
     Route: 048
     Dates: start: 20130502, end: 20130619
  3. NIFEDIPINE. [Concomitant]
     Active Substance: NIFEDIPINE
     Dosage: DAILY DOSAGE UNKNOWN, POR
     Route: 048
     Dates: end: 20130508
  4. TEMOZOLOMIDE [Suspect]
     Active Substance: TEMOZOLOMIDE
     Dosage: 200 MG/M2, QD
     Route: 041
     Dates: start: 20130514, end: 20130518
  5. ELNEOPA NO. 1 [Concomitant]
     Dosage: DAILY DOSAGE UNKNOWN
     Route: 041
     Dates: start: 20130506, end: 20130522
  6. CIMETIDINE [Concomitant]
     Active Substance: CIMETIDINE
     Indication: PROPHYLAXIS
     Dosage: DAILY DOSAGE UNKNOWN
     Route: 048
  7. SYMMETREL [Concomitant]
     Active Substance: AMANTADINE HYDROCHLORIDE
     Dosage: DAILY DOSAGE UNKNOWN
     Route: 048
     Dates: start: 20130419
  8. EBRANTIL [Concomitant]
     Active Substance: URAPIDIL
     Dosage: DAILY DOSAGE UNKNOWN
     Route: 048
     Dates: end: 20130524
  9. MICARDIS [Concomitant]
     Active Substance: TELMISARTAN
     Dosage: DAILY DOSAGE UNKNOWN, POR
     Route: 048
     Dates: end: 20130619
  10. PLAVIX [Concomitant]
     Active Substance: CLOPIDOGREL BISULFATE
     Dosage: DAILY DOSAGE UNKNOWN
     Route: 048
     Dates: end: 20130619
  11. LASIX [Concomitant]
     Active Substance: FUROSEMIDE
     Dosage: DAILY DOSAGE UNKNOWN, POR
     Route: 048
     Dates: end: 20130523
  12. TANATRIL [Concomitant]
     Active Substance: IMIDAPRIL
     Dosage: DAILY DOSAGE UNKNOWN, POR
     Route: 048
     Dates: end: 20130619
  13. FASTIC [Concomitant]
     Dosage: DAILY DOSAGE UNKNOWN, POR
     Route: 048
     Dates: end: 20130509
  14. HERBAL NOS [Concomitant]
     Active Substance: HERBALS
     Dosage: DAILY DOSAGE UNKNOWN
     Route: 048
     Dates: end: 20130509
  15. HYSERENIN [Concomitant]
     Active Substance: VALPROATE SODIUM
     Dosage: DAILY DOSAGE UNKNOWN
     Route: 048
     Dates: start: 20130509, end: 20130526
  16. SEPAMIT-R [Concomitant]
     Dosage: DAILY DOSAGE UNKNOWN
     Route: 048
     Dates: start: 20130509, end: 20130526
  17. LENDORMIN [Concomitant]
     Active Substance: BROTIZOLAM
     Dosage: DAILY DOSAGE UNKNOWN
     Route: 048
     Dates: end: 20130526
  18. FRANDOL TAPE S [Concomitant]
     Active Substance: ISOSORBIDE DINITRATE
     Dosage: EXT
     Route: 050
     Dates: end: 20130524
  19. PROMAC (POLAPREZINC) [Concomitant]
     Active Substance: POLAPREZINC
     Indication: PROPHYLAXIS
     Dosage: DAILY DOSAGE UNKNOWN
     Route: 048
  20. THYRADIN-S [Concomitant]
     Active Substance: LEVOTHYROXINE
     Dosage: DAILY DOSAGE UNKNOWN, POR
     Route: 048
  21. DEPAS [Concomitant]
     Active Substance: ETIZOLAM
     Dosage: DAILY DOSAGE UNKNOWN
     Route: 048
  22. UBRETID [Concomitant]
     Active Substance: DISTIGMINE BROMIDE
     Dosage: DAILY DOSAGE UNKNOWN, POR
     Route: 048
     Dates: end: 20130523
  23. ELECTROLYTES (UNSPECIFIED) (+) SODIUM LACTATE [Concomitant]
     Dosage: DAILY DOSAGE UNKNOWN
     Route: 041
     Dates: start: 20130506, end: 20130513
  24. TEMOZOLOMIDE [Suspect]
     Active Substance: TEMOZOLOMIDE
     Indication: ANAPLASTIC ASTROCYTOMA
     Dosage: 150 MG/M2, QD
     Route: 041
     Dates: start: 20130418, end: 20130422
  25. ELNEOPA NO. 2 [Concomitant]
     Active Substance: UNSPECIFIED INGREDIENT
     Dosage: DAILY DOSAGE UNKNOWN
     Route: 041
     Dates: start: 20130523, end: 20130607
  26. ASPIRIN. [Concomitant]
     Active Substance: ASPIRIN
     Dosage: DAILY DOSAGE UNKNOWN
     Route: 048
     Dates: start: 20130509, end: 20130513
  27. PAXIL [Concomitant]
     Active Substance: PAROXETINE HYDROCHLORIDE
     Dosage: DAILY DOSAGE UNKNOWN
     Route: 048
     Dates: end: 20130520
  28. LANTUS [Concomitant]
     Active Substance: INSULIN GLARGINE
     Dosage: DAILY DOSAGE UNKNOWN
     Route: 058
     Dates: end: 20130619
  29. MEBENDAZOLE. [Concomitant]
     Active Substance: MEBENDAZOLE
     Dosage: DAILY DOSAGE UNKNOWN
     Route: 048
     Dates: start: 20130423, end: 20130619
  30. NASEA [Concomitant]
     Active Substance: RAMOSETRON HYDROCHLORIDE
     Indication: PROPHYLAXIS
     Dosage: DAILY DOSAGE UNKNOWN, POR
     Route: 048
     Dates: start: 20130418, end: 20130518
  31. LIPITOR [Concomitant]
     Active Substance: ATORVASTATIN CALCIUM
     Dosage: DAILY DOSAGE UNKNOWN
     Route: 048
  32. PRIMPERAN [Concomitant]
     Active Substance: METOCLOPRAMIDE HYDROCHLORIDE
     Indication: PROPHYLAXIS
     Dosage: UNK
     Route: 042
     Dates: start: 20130510, end: 20130512
  33. VOLTAREN [Concomitant]
     Active Substance: DICLOFENAC SODIUM
     Dosage: DAILY DOSAGE UNKNOWN
     Route: 054
     Dates: start: 20130430, end: 20130526
  34. BAYASPIRIN [Concomitant]
     Active Substance: ASPIRIN
     Dosage: DAILY DOSAGE UNKNOWN
     Route: 048
     Dates: end: 20130619
  35. GASMOTIN [Concomitant]
     Active Substance: MOSAPRIDE CITRATE
     Indication: PROPHYLAXIS
     Dosage: DAILY DOSAGE UNKNOWN
     Route: 065
     Dates: start: 20130505, end: 20130526
  36. ROZEREM [Concomitant]
     Active Substance: RAMELTEON
     Dosage: DAILY DOSAGE UNKNOWN, POR
     Route: 048
     Dates: end: 20130526
  37. TELEMINSOFT [Concomitant]
     Dosage: DAILY DOSAGE UNKNOWN
     Route: 054
     Dates: start: 20130503, end: 20130620
  38. KEPPRA [Concomitant]
     Active Substance: LEVETIRACETAM
     Dosage: DAILY DOSAGE UNKNOWN, POR
     Route: 048
     Dates: start: 20130605, end: 20130622
  39. CELECOX [Concomitant]
     Active Substance: CELECOXIB
     Indication: PROPHYLAXIS
     Dosage: DAILY DOSAGE UNKNOWN, POR
     Route: 048
  40. EPADEL S [Concomitant]
     Active Substance: ETHYL ICOSAPENTATE\ICOSAPENT
     Dosage: DAILY DOSAGE UNKNOWN, POR
     Route: 048
  41. LAXOBERON [Concomitant]
     Active Substance: SODIUM PICOSULFATE
     Dosage: DAILY DOSAGE UNKNOWN
     Route: 048
     Dates: end: 20130619
  42. CARDENALIN [Concomitant]
     Active Substance: DOXAZOSIN MESYLATE
     Dosage: DAILY DOSAGE UNKNOWN
     Route: 048
  43. FERROMIA [Concomitant]
     Active Substance: FERROUS CITRATE
     Dosage: DAILY DOSAGE UNKNOWN, POR
     Route: 048
     Dates: end: 20130619
  44. ARTIST [Concomitant]
     Active Substance: CARVEDILOL
     Dosage: DAILY DOSAGE UNKNOWN, POR
     Route: 048
     Dates: start: 20130502, end: 20130619

REACTIONS (4)
  - Pneumonia [Not Recovered/Not Resolved]
  - General physical health deterioration [Not Recovered/Not Resolved]
  - Disease progression [Fatal]
  - Disseminated intravascular coagulation [Not Recovered/Not Resolved]

NARRATIVE: CASE EVENT DATE: 20130523
